FAERS Safety Report 6575272-8 (Version None)
Quarter: 2010Q1

REPORT INFORMATION
  Report Type: 
  Country: None (occurrence: None)
  Receive Date: 20100209
  Receipt Date: 20100202
  Transmission Date: 20100710
  Serious: Yes (Hospitalization)
  Sender: FDA-Public Use
  Company Number: US-ROCHE-662588

PATIENT
  Sex: Female
  Weight: 79.4 kg

DRUGS (12)
  1. BEVACIZUMAB [Suspect]
     Indication: GLIOBLASTOMA MULTIFORME
     Dosage: 800 MG, Q2W
     Route: 042
     Dates: start: 20090727, end: 20090904
  2. BEVACIZUMAB [Suspect]
     Dosage: 800 MG, Q2W
     Route: 042
     Dates: start: 20090727, end: 20090904
  3. TEMOZOLOMIDE [Suspect]
     Indication: GLIOBLASTOMA MULTIFORME
     Dosage: 140 MG, QD
     Route: 048
     Dates: start: 20090727, end: 20090904
  4. TEMOZOLOMIDE [Suspect]
     Dosage: 140 MG, QD
     Route: 048
     Dates: start: 20090727, end: 20090904
  5. LAMICTAL [Suspect]
     Indication: DRUG USE FOR UNKNOWN INDICATION
     Dosage: 25 MG, BID
     Route: 048
     Dates: start: 20090716, end: 20090915
  6. LAMICTAL [Suspect]
     Dosage: 25 MG, BID
     Route: 048
     Dates: start: 20090716, end: 20090915
  7. KEPPRA [Concomitant]
     Indication: DRUG USE FOR UNKNOWN INDICATION
     Dosage: 1500 MG, BID
     Route: 048
     Dates: start: 20090704
  8. LISINOPRIL [Concomitant]
     Indication: DRUG USE FOR UNKNOWN INDICATION
     Dosage: 2.5 MG, QD,
     Route: 048
     Dates: start: 20040101
  9. LISINOPRIL [Concomitant]
     Dosage: 1 TAB
     Route: 048
  10. AMBIEN [Concomitant]
     Indication: DRUG USE FOR UNKNOWN INDICATION
     Dosage: 10 MG, QHS
     Route: 048
  11. NEXIUM [Concomitant]
     Indication: DRUG USE FOR UNKNOWN INDICATION
     Dosage: 40 MG, QD
     Route: 048
  12. DIAZEPAM [Concomitant]
     Dosage: 5 MG, PRN

REACTIONS (1)
  - PYREXIA [None]
